FAERS Safety Report 20952581 (Version 1)
Quarter: 2022Q2

REPORT INFORMATION
  Report Type: Spontaneous
  Country: US (occurrence: None)
  Receive Date: 20220613
  Receipt Date: 20220613
  Transmission Date: 20220721
  Serious: No
  Sender: FDA-Public Use
  Company Number: US-Neopharma Inc-000616

PATIENT
  Sex: Female

DRUGS (2)
  1. AUGMENTIN [Suspect]
     Active Substance: AMOXICILLIN\CLAVULANATE POTASSIUM
     Indication: Bronchitis
  2. FABRAZYME [Concomitant]
     Active Substance: AGALSIDASE BETA
     Indication: Product used for unknown indication

REACTIONS (2)
  - Depression [Unknown]
  - Pyrexia [Unknown]
